FAERS Safety Report 5000923-9 (Version None)
Quarter: 2006Q2

REPORT INFORMATION
  Report Type: 
  Country: None (occurrence: None)
  Receive Date: 20060512
  Receipt Date: 20050831
  Transmission Date: 20061013
  Serious: Yes (Hospitalization, Disabling)
  Sender: FDA-Public Use
  Company Number: US-MERCK-0509USA00175

PATIENT
  Age: 46 Year
  Sex: Female
  Weight: 102 kg

DRUGS (2)
  1. VIOXX [Suspect]
     Indication: ARTHRITIS
     Route: 048
     Dates: start: 20000601, end: 20031201
  2. TYLENOL (CAPLET) [Concomitant]
     Route: 065

REACTIONS (7)
  - ANGINA PECTORIS [None]
  - CHEST PAIN [None]
  - DEPRESSION [None]
  - FOOT FRACTURE [None]
  - MYOCARDIAL INFARCTION [None]
  - ROAD TRAFFIC ACCIDENT [None]
  - UTERINE DISORDER [None]
